FAERS Safety Report 9476197 (Version 1)
Quarter: 2013Q3

REPORT INFORMATION
  Report Type: Spontaneous
  Country: BR (occurrence: None)
  Receive Date: 20130821
  Receipt Date: 20130821
  Transmission Date: 20140515
  Serious: Yes (Hospitalization)
  Sender: FDA-Public Use
  Company Number: DSJ-2013-18216

PATIENT
  Age: 49 Year
  Sex: Female
  Weight: 86 kg

DRUGS (2)
  1. BENICAR (OLMESARTAN MEDOXOMIL) (TABLET) (OLMESARTAN MEDOXOMIL) [Suspect]
     Indication: HYPERTENSION
     Dosage: 1 IN 1 D
     Route: 048
     Dates: start: 201307, end: 20130807
  2. GLICLAZIDE (GLICLAZIDE) [Suspect]
     Indication: DIABETES MELLITUS
     Route: 048
     Dates: start: 201307

REACTIONS (4)
  - Blood pressure increased [None]
  - Tachycardia [None]
  - Cholecystectomy [None]
  - Drug administration error [None]
